FAERS Safety Report 11966559 (Version 1)
Quarter: 2016Q1

REPORT INFORMATION
  Report Type: Report from Study
  Country: GB (occurrence: GB)
  Receive Date: 20160127
  Receipt Date: 20160127
  Transmission Date: 20160526
  Serious: Yes (Hospitalization)
  Sender: FDA-Public Use
  Company Number: GB-BAYER-2016-007990

PATIENT
  Age: 68 Year
  Sex: Male

DRUGS (2)
  1. SALBUTAMOL [Concomitant]
     Active Substance: ALBUTEROL
     Indication: LOWER RESPIRATORY TRACT INFECTION
     Dosage: 2 PUFF(S), TID
     Route: 055
     Dates: start: 20160112
  2. ASPIRIN. [Suspect]
     Active Substance: ASPIRIN
     Indication: NEOPLASM PROPHYLAXIS
     Dosage: UNK
     Dates: start: 20150811, end: 20160112

REACTIONS (2)
  - Influenza like illness [Recovering/Resolving]
  - Asthma [Recovering/Resolving]
